FAERS Safety Report 7098604-3 (Version None)
Quarter: 2010Q4

REPORT INFORMATION
  Report Type: 
  Country: None (occurrence: None)
  Receive Date: 20101110
  Receipt Date: 20101110
  Transmission Date: 20110411
  Serious: Yes (Hospitalization)
  Sender: FDA-Public Use
  Company Number: None

PATIENT
  Age: 52 Year
  Sex: Male

DRUGS (2)
  1. ZOLPIDEM [Suspect]
     Dosage: 10 MG HS PO
     Route: 048
     Dates: start: 20101019, end: 20101105
  2. TRAMADOL [Suspect]
     Dosage: 100 MG QID PO
     Route: 048
     Dates: start: 20101019, end: 20101105

REACTIONS (5)
  - DIARRHOEA [None]
  - HYPERHIDROSIS [None]
  - MYDRIASIS [None]
  - OVERDOSE [None]
  - TREMOR [None]
